FAERS Safety Report 20373476 (Version 5)
Quarter: 2022Q3

REPORT INFORMATION
  Report Type: Report from Study
  Country: KR (occurrence: KR)
  Receive Date: 20220125
  Receipt Date: 20220909
  Transmission Date: 20221026
  Serious: Yes (Other)
  Sender: FDA-Public Use
  Company Number: KR-NOVARTISPH-NVSC2021KR175659

PATIENT
  Age: 50 Year
  Sex: Female

DRUGS (44)
  1. KISQALI [Suspect]
     Active Substance: RIBOCICLIB
     Indication: Hormone receptor positive HER2 negative breast cancer
     Dosage: 600 MG, QD
     Route: 048
     Dates: start: 20210625, end: 20210714
  2. KISQALI [Suspect]
     Active Substance: RIBOCICLIB
     Dosage: 600 MG, QD
     Route: 048
     Dates: start: 20210726, end: 20210816
  3. KISQALI [Suspect]
     Active Substance: RIBOCICLIB
     Dosage: 600 MG, QD
     Route: 048
     Dates: start: 20210823, end: 20210910
  4. KISQALI [Suspect]
     Active Substance: RIBOCICLIB
     Dosage: 600 MG, QD
     Route: 048
     Dates: start: 20210917, end: 20211008
  5. KISQALI [Suspect]
     Active Substance: RIBOCICLIB
     Dosage: 600 MG, QD
     Route: 048
     Dates: start: 20211015, end: 20211105
  6. KISQALI [Suspect]
     Active Substance: RIBOCICLIB
     Dosage: 600 MG, QD
     Route: 048
     Dates: start: 20211112, end: 20211203
  7. KISQALI [Suspect]
     Active Substance: RIBOCICLIB
     Dosage: 600 MG, QD
     Route: 048
     Dates: start: 20211210, end: 20211231
  8. FEMARA [Concomitant]
     Active Substance: LETROZOLE
     Indication: Hormone therapy
     Dosage: 2.5 MG, QD (PER DAY)
     Route: 048
     Dates: start: 20210616, end: 20210714
  9. FEMARA [Concomitant]
     Active Substance: LETROZOLE
     Dosage: 2.5 MG, QD (PER DAY)
     Route: 048
     Dates: start: 20210726
  10. DENOSUMAB [Concomitant]
     Active Substance: DENOSUMAB
     Indication: Prophylaxis
     Dosage: 120 MG, QD (PER DAY)
     Route: 058
     Dates: start: 20210616
  11. CALCIUM CARBONATE\CHOLECALCIFEROL [Concomitant]
     Active Substance: CALCIUM CARBONATE\CHOLECALCIFEROL
     Indication: Prophylaxis
     Dosage: 1 DOSAGE FORM, QD (PER DAY)
     Route: 048
     Dates: start: 20170221, end: 20210714
  12. CALCIUM CARBONATE\CHOLECALCIFEROL [Concomitant]
     Active Substance: CALCIUM CARBONATE\CHOLECALCIFEROL
     Indication: Vitamin D deficiency
     Dosage: 1 DOSAGE FORM, QD (PER DAY)
     Route: 048
     Dates: start: 20211014
  13. LAFUTIDINE [Concomitant]
     Active Substance: LAFUTIDINE
     Indication: Prophylaxis
     Dosage: 2 DOSAGE FORM, QD (PER DAY)
     Route: 048
     Dates: start: 20170217, end: 20210714
  14. LAFUTIDINE [Concomitant]
     Active Substance: LAFUTIDINE
     Dosage: 1 DOSAGE FORM, QD (PER DAY)
     Route: 065
     Dates: start: 20211013
  15. TAMOXIFEN [Concomitant]
     Active Substance: TAMOXIFEN
     Indication: Hormone therapy
     Dosage: 1 DOSAGE FORM, QD
     Route: 048
     Dates: start: 20170807, end: 20210714
  16. OMARON [Concomitant]
     Indication: Prophylaxis
     Dosage: 2 DOSAGE FORM, QD (PER DAY)
     Route: 048
     Dates: start: 20210517, end: 20210714
  17. OMARON [Concomitant]
     Dosage: 2 DOSAGE FORM, QD (PER DAY)
     Route: 048
     Dates: start: 20211013
  18. AMINO ACIDS\DEXTROSE\ELECTROLYTES NOS\SOYBEAN OIL\VITAMINS [Concomitant]
     Active Substance: AMINO ACIDS\DEXTROSE\ELECTROLYTES NOS\SOYBEAN OIL\VITAMINS
     Indication: Decreased appetite
     Dosage: 654 ML, QD
     Route: 042
     Dates: start: 20210714, end: 20210714
  19. SODIUM CHLORIDE [Concomitant]
     Active Substance: SODIUM CHLORIDE
     Indication: Headache
     Dosage: 500 ML, QD
     Route: 042
     Dates: start: 20210714, end: 20210714
  20. SODIUM CHLORIDE [Concomitant]
     Active Substance: SODIUM CHLORIDE
     Dosage: 1000 ML, QD
     Route: 042
     Dates: start: 20210715, end: 20210719
  21. TIROPRAMIDE [Concomitant]
     Active Substance: TIROPRAMIDE
     Indication: Abdominal pain upper
     Dosage: 100 MG, QD
     Route: 048
     Dates: start: 20210719, end: 20210830
  22. BUTYLSCOPOLAMINE BROMIDE [Concomitant]
     Active Substance: BUTYLSCOPOLAMINE BROMIDE
     Indication: Abdominal pain upper
     Dosage: 20 MG, QD
     Route: 042
     Dates: start: 20210714, end: 20210719
  23. OMPS [Concomitant]
     Indication: Abdominal pain upper
     Dosage: 40 MG, QD
     Route: 042
     Dates: start: 20210714, end: 20210719
  24. OMPS [Concomitant]
     Dosage: 40 MG,QD
     Route: 048
     Dates: start: 20210719, end: 20210830
  25. ACETOPHEN [Concomitant]
     Indication: Headache
     Dosage: 1 G/ML, QD
     Route: 042
     Dates: start: 20210714, end: 20210719
  26. NUTRIFLEX LIPID PERI [Concomitant]
     Indication: Decreased appetite
     Dosage: 1250 ML, QD
     Route: 042
     Dates: start: 20210715, end: 20210719
  27. PACETA [Concomitant]
     Indication: Vaginal haemorrhage
     Dosage: 1 G, QD
     Route: 042
     Dates: start: 20210715, end: 20210715
  28. AVELOX [Concomitant]
     Active Substance: MOXIFLOXACIN HYDROCHLORIDE
     Indication: Vaginal haemorrhage
     Dosage: 400 MG, QD
     Route: 042
     Dates: start: 20210715, end: 20210719
  29. TAZOLACTAM [Concomitant]
     Indication: Vaginal haemorrhage
     Dosage: 4.5 G, QD
     Route: 042
     Dates: start: 20210715, end: 20210719
  30. AMOXCLAN DUO [Concomitant]
     Indication: Vaginal haemorrhage
     Dosage: 500 MG, QD
     Route: 048
     Dates: start: 20210715, end: 20210716
  31. CRAMING [Concomitant]
     Indication: Headache
     Dosage: 1 DF, QD
     Route: 048
     Dates: start: 20210715, end: 20210716
  32. ALGIGEN [Concomitant]
     Indication: Abdominal pain upper
     Dosage: 1.5 G, QD (STICK)
     Route: 048
     Dates: start: 20210715, end: 20210716
  33. SUSPEN [Concomitant]
     Indication: Headache
     Dosage: 650 MG, QD
     Route: 048
     Dates: start: 20210715, end: 20210715
  34. SUSPEN [Concomitant]
     Dosage: 650 MG, QD
     Route: 048
     Dates: start: 20210719, end: 20210726
  35. ATIVAN [Concomitant]
     Active Substance: LORAZEPAM
     Indication: Abdominal pain upper
     Dosage: 4 MG, QD
     Route: 042
     Dates: start: 20210716, end: 20210719
  36. ATIVAN [Concomitant]
     Active Substance: LORAZEPAM
     Dosage: 0.5 MG, QD
     Route: 048
     Dates: start: 20210719
  37. ALMAGEL-F [Concomitant]
     Indication: Abdominal pain upper
     Dosage: 1.5 G, QD
     Route: 048
     Dates: start: 20210716, end: 20210830
  38. ALPRAZOLAM [Concomitant]
     Active Substance: ALPRAZOLAM
     Indication: Abdominal pain upper
     Dosage: 0.25 MG, QD
     Route: 048
     Dates: start: 20210716
  39. STILLEN [Concomitant]
     Indication: Abdominal pain upper
     Dosage: 90 MG, QD
     Route: 048
     Dates: start: 20210716, end: 20210830
  40. AMITRIPTYLINE [Concomitant]
     Active Substance: AMITRIPTYLINE
     Indication: Abdominal pain upper
     Dosage: 10 MG, QD
     Route: 048
     Dates: start: 20210719, end: 20210726
  41. BUTYLSCOPOLAMINE BROMIDE [Concomitant]
     Active Substance: BUTYLSCOPOLAMINE BROMIDE
     Indication: Abdominal pain upper
     Dosage: 10 MG, QD
     Route: 048
     Dates: start: 20210719, end: 20210830
  42. LENARA [Concomitant]
     Indication: Hormone therapy
     Dosage: 2.5 MG, QD
     Route: 048
     Dates: start: 20210719, end: 20210721
  43. MAGNESIUM HYDROXIDE [Concomitant]
     Active Substance: MAGNESIUM HYDROXIDE
     Indication: Prophylaxis
     Dosage: 500 MG, QD
     Route: 048
     Dates: start: 20210917, end: 20210923
  44. VITAMIN D3 BON [Concomitant]
     Indication: Vitamin D deficiency
     Dosage: 5 MG, QD
     Route: 030
     Dates: start: 20211015, end: 20211015

REACTIONS (2)
  - Gastritis erosive [Not Recovered/Not Resolved]
  - Nausea [Recovered/Resolved]

NARRATIVE: CASE EVENT DATE: 20210715
